FAERS Safety Report 9995079 (Version 1)
Quarter: 2014Q1

REPORT INFORMATION
  Report Type: Spontaneous
  Country: US (occurrence: None)
  Receive Date: 20140218
  Receipt Date: 20140218
  Transmission Date: 20141002
  Serious: Yes (Other)
  Sender: FDA-Public Use
  Company Number: 1000050858

PATIENT
  Age: 72 Year
  Sex: Female

DRUGS (1)
  1. VIIBRYD [Suspect]
     Indication: PAIN
     Route: 048
     Dates: start: 20131030, end: 201311

REACTIONS (4)
  - Dyspepsia [None]
  - Diarrhoea [None]
  - Headache [None]
  - Off label use [None]
